FAERS Safety Report 19663343 (Version 1)
Quarter: 2021Q3

REPORT INFORMATION
  Report Type: Spontaneous
  Country: US (occurrence: US)
  Receive Date: 20210806
  Receipt Date: 20210806
  Transmission Date: 20211014
  Serious: Yes (Other)
  Sender: FDA-Public Use
  Company Number: US-PURDUE-USA-2020-0196666

PATIENT
  Age: 25 Year
  Sex: Male
  Weight: 88.44 kg

DRUGS (7)
  1. HYDROCODONE BITARTRATE AND ACETAMINOPHEN [Suspect]
     Active Substance: ACETAMINOPHEN\HYDROCODONE BITARTRATE
     Indication: PRODUCT USED FOR UNKNOWN INDICATION
     Dosage: UNK
     Route: 048
  2. REMERON [Concomitant]
     Active Substance: MIRTAZAPINE
     Indication: ALCOHOLISM
     Dosage: UNK, (AT 9:30 PM)
     Route: 065
  3. INDERAL [Concomitant]
     Active Substance: PROPRANOLOL HYDROCHLORIDE
     Indication: ALCOHOLISM
     Dosage: 20 MG, UNK, (PRN AS NEEDED)
     Route: 065
  4. SUBOXONE [Suspect]
     Active Substance: BUPRENORPHINE HYDROCHLORIDE\NALOXONE HYDROCHLORIDE
     Indication: PRODUCT USED FOR UNKNOWN INDICATION
     Dosage: UNK, (8 MG?2MG TABLETS SL)
     Route: 060
  5. PAXIL [Concomitant]
     Active Substance: PAROXETINE HYDROCHLORIDE
     Indication: ALCOHOLISM
     Dosage: 15 MG, UNK, (AT 8AM AND 9:30 PM)
     Route: 065
  6. BUPRENORPHINE TRANSDERMAL PATCH (SIMILAR TO NDA 21?306) [Suspect]
     Active Substance: BUPRENORPHINE
     Indication: PRODUCT USED FOR UNKNOWN INDICATION
     Dosage: UNK
     Route: 062
  7. OXYCODONE/ ACETAMINOPHEN TABLETS [Suspect]
     Active Substance: ACETAMINOPHEN\OXYCODONE HYDROCHLORIDE
     Indication: PRODUCT USED FOR UNKNOWN INDICATION
     Dosage: UNK
     Route: 048

REACTIONS (2)
  - Drug dependence [Unknown]
  - Emotional distress [Unknown]
